FAERS Safety Report 25872458 (Version 1)
Quarter: 2025Q4

REPORT INFORMATION
  Report Type: Spontaneous
  Country: EU (occurrence: EU)
  Receive Date: 20251002
  Receipt Date: 20251002
  Transmission Date: 20260119
  Serious: Yes (Hospitalization)
  Sender: ASTELLAS
  Company Number: EU-ASTELLAS-2025-AER-054121

PATIENT
  Age: 74 Year
  Sex: Male

DRUGS (5)
  1. ENZALUTAMIDE [Suspect]
     Active Substance: ENZALUTAMIDE
     Indication: Prostate cancer metastatic
     Route: 065
  2. PERINDOPRIL [Concomitant]
     Active Substance: PERINDOPRIL
     Indication: Hypertension
     Route: 065
  3. AMLODIPINE [Concomitant]
     Active Substance: AMLODIPINE BESYLATE
     Indication: Hypertension
     Route: 065
  4. AMLODIPINE [Concomitant]
     Active Substance: AMLODIPINE BESYLATE
     Route: 065
  5. INDAPAMIDE [Concomitant]
     Active Substance: INDAPAMIDE
     Indication: Hypertension
     Route: 065

REACTIONS (4)
  - Coronary artery disease [Unknown]
  - Hypertension [Unknown]
  - Dyslipidaemia [Unknown]
  - Condition aggravated [Unknown]
